FAERS Safety Report 6866753-8 (Version None)
Quarter: 2010Q2

REPORT INFORMATION
  Report Type: 
  Country: None (occurrence: None)
  Receive Date: 20100610
  Receipt Date: 20100224
  Transmission Date: 20101027
  Serious: No
  Sender: FDA-Public Use
  Company Number: 2010SP012597

PATIENT

DRUGS (3)
  1. SAPHRIS [Suspect]
     Indication: BIPOLAR DISORDER
     Dosage: 10 MG;BID;
  2. SAPHRIS [Suspect]
     Indication: MANIA
     Dosage: 10 MG;BID;
  3. SAPHRIS [Suspect]
     Indication: SCHIZOPHRENIA
     Dosage: 10 MG;BID;

REACTIONS (2)
  - NAUSEA [None]
  - VOMITING [None]
